FAERS Safety Report 8468893 (Version 3)
Quarter: 2012Q4

REPORT INFORMATION
  Report Type: 
  Country: US (occurrence: US)
  Receive Date: 20120321
  Receipt Date: 20121029
  Transmission Date: 20130627
  Serious: Yes (Disabling, Other)
  Sender: FDA-Public Use
  Company Number: US-ROCHE-1047370

PATIENT
  Age: 18 Year
  Sex: Female
  Weight: 59.02 kg

DRUGS (3)
  1. ACCUTANE [Suspect]
     Indication: ACNE
     Route: 065
     Dates: start: 1988, end: 1999
  2. ACCUTANE [Suspect]
     Route: 065
     Dates: start: 2001, end: 200204
  3. ACCUTANE [Suspect]
     Dosage: 40 mg alternating with 80 mg
     Route: 065
     Dates: start: 20021101

REACTIONS (8)
  - Proctitis [Unknown]
  - Irritable bowel syndrome [Unknown]
  - Depression [Unknown]
  - Injury [Unknown]
  - Suicidal ideation [Unknown]
  - Obsessive-compulsive disorder [Unknown]
  - Dry skin [Unknown]
  - Acne [Unknown]
